FAERS Safety Report 8543127-5 (Version None)
Quarter: 2012Q3

REPORT INFORMATION
  Report Type: 
  Country: None (occurrence: None)
  Receive Date: 20120727
  Receipt Date: 20120224
  Transmission Date: 20120928
  Serious: No
  Sender: FDA-Public Use
  Company Number: US-MYLANLABS-2012S1002556

PATIENT
  Age: 60 Year
  Sex: Male

DRUGS (3)
  1. LEVOTHYROXINE SODIUM [Suspect]
     Indication: HYPOTHYROIDISM
     Route: 048
     Dates: start: 20111001, end: 20120202
  2. LEVOTHYROXINE SODIUM [Suspect]
     Route: 048
     Dates: start: 20120202, end: 20120219
  3. AMLODIPINE BESYLATE AND BENAZEPRIL HCL [Concomitant]
     Indication: BLOOD PRESSURE INCREASED
     Route: 048
     Dates: start: 20000101

REACTIONS (6)
  - CHEST PAIN [None]
  - DYSPNOEA [None]
  - YAWNING [None]
  - FLATULENCE [None]
  - THERAPY REGIMEN CHANGED [None]
  - ABDOMINAL DISTENSION [None]
